FAERS Safety Report 19300172 (Version 2)
Quarter: 2021Q4

REPORT INFORMATION
  Report Type: Report from Study
  Country: US (occurrence: US)
  Receive Date: 20210525
  Receipt Date: 20211103
  Transmission Date: 20220303
  Serious: Yes (Other)
  Sender: FDA-Public Use
  Company Number: US-SUN PHARMACEUTICAL INDUSTRIES LTD-2021R1-297840

PATIENT
  Age: 32 Year
  Sex: Female

DRUGS (10)
  1. DOXORUBICIN [Suspect]
     Active Substance: DOXORUBICIN
     Indication: Anaplastic large cell lymphoma T- and null-cell types
     Route: 065
  2. DOXORUBICIN [Suspect]
     Active Substance: DOXORUBICIN
     Indication: Anaplastic lymphoma kinase gene mutation
  3. VINCRISTINE [Suspect]
     Active Substance: VINCRISTINE
     Indication: Anaplastic large cell lymphoma T- and null-cell types
     Route: 065
  4. VINCRISTINE [Suspect]
     Active Substance: VINCRISTINE
     Indication: Anaplastic lymphoma kinase gene mutation
  5. PREDNISONE [Suspect]
     Active Substance: PREDNISONE
     Indication: Anaplastic large cell lymphoma T- and null-cell types
     Route: 065
  6. PREDNISONE [Suspect]
     Active Substance: PREDNISONE
     Indication: Anaplastic lymphoma kinase gene mutation
  7. RITUXIMAB [Suspect]
     Active Substance: RITUXIMAB
     Indication: Anaplastic large cell lymphoma T- and null-cell types
     Route: 065
  8. RITUXIMAB [Suspect]
     Active Substance: RITUXIMAB
     Indication: Anaplastic lymphoma kinase gene mutation
  9. CYCLOPHOSPHAMIDE [Suspect]
     Active Substance: CYCLOPHOSPHAMIDE
     Indication: Anaplastic large cell lymphoma T- and null-cell types
     Route: 065
  10. CYCLOPHOSPHAMIDE [Suspect]
     Active Substance: CYCLOPHOSPHAMIDE
     Indication: Anaplastic lymphoma kinase gene mutation

REACTIONS (1)
  - Mass [Recovered/Resolved]
